FAERS Safety Report 24553495 (Version 1)
Quarter: 2024Q4

REPORT INFORMATION
  Report Type: Report from Study
  Country: US (occurrence: US)
  Receive Date: 20241028
  Receipt Date: 20241028
  Transmission Date: 20250114
  Serious: No
  Sender: ROCHE
  Company Number: US-ROCHE-3503595

PATIENT
  Sex: Female
  Weight: 73.94 kg

DRUGS (4)
  1. NUTROPIN AQ [Suspect]
     Active Substance: SOMATROPIN
     Indication: Hormone therapy
     Dosage: EVERY MORNING ;ONGOING: UNKNOWN
     Route: 065
     Dates: start: 2023
  2. NUTROPIN AQ [Suspect]
     Active Substance: SOMATROPIN
     Indication: Sluggishness
  3. NORDITROPIN [Suspect]
     Active Substance: SOMATROPIN
     Indication: Hormone therapy
     Route: 065
  4. XARELTO [Concomitant]
     Active Substance: RIVAROXABAN

REACTIONS (8)
  - Insomnia [Recovered/Resolved]
  - Off label use [Unknown]
  - Fatigue [Not Recovered/Not Resolved]
  - Asthenia [Not Recovered/Not Resolved]
  - Musculoskeletal stiffness [Not Recovered/Not Resolved]
  - Pain [Not Recovered/Not Resolved]
  - Muscle tightness [Not Recovered/Not Resolved]
  - Bradykinesia [Not Recovered/Not Resolved]

NARRATIVE: CASE EVENT DATE: 20240119
